FAERS Safety Report 14759955 (Version 1)
Quarter: 2018Q2

REPORT INFORMATION
  Report Type: Spontaneous
  Country: US (occurrence: US)
  Receive Date: 20180413
  Receipt Date: 20180413
  Transmission Date: 20180711
  Serious: No
  Sender: FDA-Public Use
  Company Number: US-TEVA-2018-US-881467

PATIENT
  Age: 4 Day
  Sex: Female

DRUGS (3)
  1. SODIUM HYPOCHLORITE [Concomitant]
     Active Substance: SODIUM HYPOCHLORITE
  2. ACITRETIN. [Suspect]
     Active Substance: ACITRETIN
     Indication: HARLEQUIN SYNDROME
     Route: 048
  3. CHLORHEXIDINE [Concomitant]
     Active Substance: CHLORHEXIDINE

REACTIONS (1)
  - Drug ineffective [Unknown]
